FAERS Safety Report 11239830 (Version 3)
Quarter: 2017Q3

REPORT INFORMATION
  Report Type: Report from Study
  Country: US (occurrence: US)
  Receive Date: 20150706
  Receipt Date: 20170801
  Transmission Date: 20171127
  Serious: Yes (Death, Hospitalization)
  Sender: FDA-Public Use
  Company Number: US-BAYER-2015-065770

PATIENT
  Age: 69 Year
  Sex: Male

DRUGS (13)
  1. NEXAVAR [Suspect]
     Active Substance: SORAFENIB
     Indication: ACUTE MYELOMONOCYTIC LEUKAEMIA
     Dosage: 200 MG, BID
     Route: 048
     Dates: start: 20150401, end: 20150603
  2. NEXAVAR [Suspect]
     Active Substance: SORAFENIB
     Indication: ACUTE MYELOID LEUKAEMIA
     Dosage: 200 MG, QD
     Route: 048
     Dates: end: 201707
  3. LOTRISONE [Concomitant]
     Active Substance: BETAMETHASONE DIPROPIONATE\CLOTRIMAZOLE
  4. NEXAVAR [Suspect]
     Active Substance: SORAFENIB
     Indication: ACUTE MYELOID LEUKAEMIA
     Dosage: 200 MG, BID
     Route: 048
  5. LIPITOR [Concomitant]
     Active Substance: ATORVASTATIN CALCIUM
     Dosage: 10 MG, UNK
  6. LOTRISONE [Concomitant]
     Active Substance: BETAMETHASONE DIPROPIONATE\CLOTRIMAZOLE
  7. NEXAVAR [Suspect]
     Active Substance: SORAFENIB
     Indication: ACUTE PROMYELOCYTIC LEUKAEMIA
     Dosage: 200 MG, QD
     Route: 048
     Dates: start: 20150723
  8. LISINOPRIL. [Concomitant]
     Active Substance: LISINOPRIL
     Dosage: 5 MG, UNK
  9. NEXAVAR [Suspect]
     Active Substance: SORAFENIB
     Indication: ACUTE MYELOID LEUKAEMIA
     Dosage: 200 MG, QD
     Route: 048
     Dates: start: 20150313, end: 20150325
  10. LEVAQUIN [Concomitant]
     Active Substance: LEVOFLOXACIN
     Dosage: 500 MG, UNK
  11. VORICONAZOLE. [Concomitant]
     Active Substance: VORICONAZOLE
  12. ZOVIRAX [Concomitant]
     Active Substance: ACYCLOVIR
     Dosage: 800 MG, UNK
  13. COREG [Concomitant]
     Active Substance: CARVEDILOL

REACTIONS (28)
  - Death [Fatal]
  - Influenza like illness [None]
  - Fatigue [Recovered/Resolved]
  - Ear discomfort [Recovered/Resolved]
  - Dyspnoea [None]
  - Hyponatraemia [None]
  - Off label use [None]
  - Febrile neutropenia [Recovered/Resolved]
  - Micturition urgency [None]
  - Gouty arthritis [None]
  - Decreased appetite [None]
  - Chills [Recovered/Resolved]
  - Rash papular [Not Recovered/Not Resolved]
  - Pyrexia [None]
  - Diarrhoea [None]
  - Pyrexia [Recovered/Resolved]
  - Food poisoning [None]
  - Nausea [None]
  - Hypophagia [None]
  - Hyperuricaemia [None]
  - Vomiting [None]
  - Arthralgia [None]
  - Metabolic acidosis [None]
  - Rash [Recovered/Resolved]
  - Pollakiuria [None]
  - Abdominal pain [None]
  - Anaemia [None]
  - Dysuria [None]

NARRATIVE: CASE EVENT DATE: 20150316
